FAERS Safety Report 4796427-9 (Version None)
Quarter: 2005Q4

REPORT INFORMATION
  Report Type: 
  Country: None (occurrence: None)
  Receive Date: 20051011
  Receipt Date: 20040819
  Transmission Date: 20060501
  Serious: Yes (Hospitalization)
  Sender: FDA-Public Use
  Company Number: 2004-08-1072

PATIENT
  Age: 38 Year
  Sex: Female
  Weight: 69.8539 kg

DRUGS (10)
  1. TEMODAR [Suspect]
     Indication: ANAPLASTIC ASTROCYTOMA
     Dosage: 75MG/M^2 QD ORAL;  200MG/M^2 QD ORAL
     Route: 048
     Dates: start: 20040506, end: 20040617
  2. TEMODAR [Suspect]
     Indication: ANAPLASTIC ASTROCYTOMA
     Dosage: 75MG/M^2 QD ORAL;  200MG/M^2 QD ORAL
     Route: 048
     Dates: start: 20040719, end: 20040723
  3. DEPAKOTE [Concomitant]
  4. EFFEXOR [Concomitant]
  5. SYNTHROID [Concomitant]
  6. KEPPRA [Concomitant]
  7. PHENOBARBITAL TAB [Concomitant]
  8. CLIMARA [Concomitant]
  9. DEXAMETHASONE [Concomitant]
  10. RADIATION THERAPY [Concomitant]

REACTIONS (8)
  - ANOREXIA [None]
  - ASTHENIA [None]
  - HEADACHE [None]
  - NAUSEA [None]
  - NEUTROPENIA [None]
  - PYREXIA [None]
  - THROMBOCYTOPENIA [None]
  - URINARY TRACT INFECTION [None]
